FAERS Safety Report 8616275-9 (Version None)
Quarter: 2012Q3

REPORT INFORMATION
  Report Type: 
  Country: None (occurrence: None)
  Receive Date: 20120823
  Receipt Date: 20120820
  Transmission Date: 20120928
  Serious: Yes (Other)
  Sender: FDA-Public Use
  Company Number: DE-ROXANE LABORATORIES, INC.-2012-RO-01724RO

PATIENT
  Age: 53 Year
  Sex: Male

DRUGS (3)
  1. PREDNISOLONE [Suspect]
     Indication: RHEUMATOID ARTHRITIS
  2. METHOTREXATE [Suspect]
     Indication: RHEUMATOID ARTHRITIS
  3. TOFACITINIB CITRATE [Suspect]
     Indication: RHEUMATOID ARTHRITIS

REACTIONS (5)
  - OEDEMA PERIPHERAL [None]
  - SMALL CELL LUNG CANCER STAGE UNSPECIFIED [None]
  - GLOMERULONEPHRITIS MEMBRANOUS [None]
  - WEIGHT INCREASED [None]
  - NEPHROTIC SYNDROME [None]
